FAERS Safety Report 5109887-0 (Version None)
Quarter: 2006Q3

REPORT INFORMATION
  Report Type: 
  Country: None (occurrence: None)
  Receive Date: 20060919
  Receipt Date: 20060919
  Transmission Date: 20061208
  Serious: Yes (Hospitalization)
  Sender: FDA-Public Use
  Company Number: None

PATIENT
  Age: 65 Year
  Sex: Male
  Weight: 83 kg

DRUGS (5)
  1. HEPARIN [Suspect]
     Indication: TRANSIENT ISCHAEMIC ATTACK
     Dosage: 1000 UNITS/HR IV
     Route: 042
     Dates: start: 20060626, end: 20060627
  2. DIOVAN [Suspect]
     Indication: HYPERTENSION
     Dosage: 80 MG PO DAILY    CHRONIC
     Route: 048
  3. PLAVIX [Concomitant]
  4. ASPIRIN [Concomitant]
  5. LOVASTATIN [Concomitant]

REACTIONS (3)
  - RASH ERYTHEMATOUS [None]
  - SWELLING FACE [None]
  - SWOLLEN TONGUE [None]
